FAERS Safety Report 25402687 (Version 1)
Quarter: 2025Q2

REPORT INFORMATION
  Report Type: Spontaneous
  Country: ES (occurrence: ES)
  Receive Date: 20250605
  Receipt Date: 20250605
  Transmission Date: 20250716
  Serious: Yes (Other)
  Sender: PFIZER
  Company Number: None

PATIENT
  Age: 69 Year
  Sex: Male

DRUGS (2)
  1. CISPLATIN [Interacting]
     Active Substance: CISPLATIN
     Indication: Pancreatic neuroendocrine tumour metastatic
     Route: 042
     Dates: start: 20240809, end: 20241024
  2. GEMCITABINE HYDROCHLORIDE [Interacting]
     Active Substance: GEMCITABINE HYDROCHLORIDE
     Indication: Pancreatic neuroendocrine tumour metastatic
     Route: 042
     Dates: start: 20240809, end: 20241024

REACTIONS (3)
  - Neuropathy peripheral [Not Recovered/Not Resolved]
  - Labelled drug-drug interaction medication error [Unknown]
  - Off label use [Unknown]

NARRATIVE: CASE EVENT DATE: 20240809
